FAERS Safety Report 8106914-3 (Version None)
Quarter: 2011Q4

REPORT INFORMATION
  Report Type: 
  Country: None (occurrence: None)
  Receive Date: 20111227
  Receipt Date: 20110914
  Transmission Date: 20120403
  Serious: No
  Sender: FDA-Public Use
  Company Number: PHEH2011US04742

PATIENT
  Age: 40 Year
  Sex: Female
  Weight: 77.1 kg

DRUGS (12)
  1. BACLOFEN (BACLOFEN) TABLET, 10 MG [Concomitant]
  2. ALLEGRA (FEXOFENADINE HYDROCHLORIDE) TABLET, 30 MG [Concomitant]
  3. GILENYA [Suspect]
     Dosage: 0.5 MG, QD, ORAL
     Route: 048
  4. NEURONTIN [Concomitant]
  5. VICODIN [Concomitant]
  6. FLONASE [Concomitant]
  7. NEXIUM (ESOMEPRAZOLE MAGNESIUM) CAPSULE, 20 MG [Concomitant]
  8. TOPAMAX (TOPIRAMATE) TABLET, 25 MG [Concomitant]
  9. NUVIGIL (ARMODAFINIL) TABLET, 50 MG [Concomitant]
  10. ZOLOFT (SERTRALINE HYDROCHLORIDE) TABLET, 25 MG [Concomitant]
  11. ZESTRIL (LISINOPRIL) TABLET, 2.5 MG [Concomitant]
  12. PROMETHAZINE (PROMETHAZINE) TABLET, 12.5 MG [Concomitant]

REACTIONS (2)
  - DYSPNOEA [None]
  - HEART RATE ABNORMAL [None]
